FAERS Safety Report 20510830 (Version 1)
Quarter: 2022Q1

REPORT INFORMATION
  Report Type: Report from Study
  Country: US (occurrence: US)
  Receive Date: 20220224
  Receipt Date: 20220224
  Transmission Date: 20220423
  Serious: Yes (Other)
  Sender: FDA-Public Use
  Company Number: US-ABBVIE-22K-163-4287568-00

PATIENT
  Sex: Female

DRUGS (4)
  1. HUMIRA [Suspect]
     Active Substance: ADALIMUMAB
     Indication: Ankylosing spondylitis
     Route: 058
     Dates: start: 20210512
  2. COVID-19 VACCINE [Concomitant]
     Indication: COVID-19 immunisation
     Dosage: FIRST DOSE
     Route: 030
  3. COVID-19 VACCINE [Concomitant]
     Dosage: SECOND DOSE
     Route: 030
  4. COVID-19 VACCINE [Concomitant]
     Dosage: BOOSTER DOSE
     Route: 030

REACTIONS (9)
  - Contusion [Recovering/Resolving]
  - Head injury [Unknown]
  - Vitreous floaters [Recovered/Resolved]
  - Pain [Unknown]
  - Musculoskeletal stiffness [Unknown]
  - Blood electrolytes decreased [Unknown]
  - Dehydration [Unknown]
  - Loss of personal independence in daily activities [Not Recovered/Not Resolved]
  - Fall [Unknown]

NARRATIVE: CASE EVENT DATE: 20210101
